FAERS Safety Report 5340980-3 (Version None)
Quarter: 2007Q2

REPORT INFORMATION
  Report Type: 
  Country: None (occurrence: None)
  Receive Date: 20070405
  Receipt Date: 20061102
  Transmission Date: 20071010
  Serious: No
  Sender: FDA-Public Use
  Company Number: US200607003305

PATIENT
  Age: 63 Year
  Sex: Female

DRUGS (4)
  1. CYMBALTA [Suspect]
     Indication: DEPRESSION
     Dosage: 60 MG, DAILY (1/D)
     Dates: start: 20060601
  2. PROZAC [Suspect]
     Indication: DEPRESSION
  3. CHOLESTEROL- AND TRIGLYCERIDE REDUCERS [Concomitant]
  4. ALLERGY MEDICATION [Concomitant]

REACTIONS (5)
  - ABNORMAL DREAMS [None]
  - FATIGUE [None]
  - HYPERHIDROSIS [None]
  - INSOMNIA [None]
  - STOMACH DISCOMFORT [None]
